FAERS Safety Report 16474896 (Version 1)
Quarter: 2019Q3

REPORT INFORMATION
  Report Type: Spontaneous
  Country: US (occurrence: US)
  Receive Date: 20190624
  Receipt Date: 20190624
  Transmission Date: 20191004
  Serious: Yes (Other)
  Sender: FDA-Public Use
  Company Number: None

PATIENT
  Age: 59 Year
  Sex: Female
  Weight: 130.95 kg

DRUGS (8)
  1. TYLENOL EXTRA STRENGTH [Concomitant]
     Active Substance: ACETAMINOPHEN
  2. ELIQUIS [Suspect]
     Active Substance: APIXABAN
     Indication: PULMONARY EMBOLISM
     Dosage: ?          QUANTITY:1 TABLET(S);?
     Route: 048
     Dates: start: 20190412, end: 20190624
  3. HYDROCHLOROTHIAZIDE. [Concomitant]
     Active Substance: HYDROCHLOROTHIAZIDE
  4. DAILY MULTI-VITAMIN GUMMIES [Concomitant]
  5. LISONOPRIL [Concomitant]
  6. DAILY VITAMIN D3 [Concomitant]
  7. SYNTHROID [Concomitant]
     Active Substance: LEVOTHYROXINE SODIUM
  8. LASIX [Concomitant]
     Active Substance: FUROSEMIDE

REACTIONS (23)
  - Paraesthesia [None]
  - Pruritus [None]
  - Insomnia [None]
  - Nausea [None]
  - Hypokinesia [None]
  - Chest discomfort [None]
  - Palpitations [None]
  - Presyncope [None]
  - Dyspnoea [None]
  - Fatigue [None]
  - Discomfort [None]
  - Muscle twitching [None]
  - Anxiety [None]
  - Malaise [None]
  - Chest pain [None]
  - Hypopnoea [None]
  - Flank pain [None]
  - Abdominal discomfort [None]
  - Diarrhoea [None]
  - Headache [None]
  - Respiratory rate increased [None]
  - Depression [None]
  - Heart rate decreased [None]

NARRATIVE: CASE EVENT DATE: 20190609
